FAERS Safety Report 24733763 (Version 3)
Quarter: 2025Q1

REPORT INFORMATION
  Report Type: Spontaneous
  Country: US (occurrence: US)
  Receive Date: 20241213
  Receipt Date: 20250204
  Transmission Date: 20250408
  Serious: No
  Sender: SANOFI AVENTIS
  Company Number: US-SA-2024SA367900

PATIENT
  Age: 82 Year
  Sex: Male

DRUGS (1)
  1. DUPIXENT [Suspect]
     Active Substance: DUPILUMAB
     Indication: Dermatitis atopic
     Dosage: 300 MG, QOW
     Route: 058
     Dates: start: 202302

REACTIONS (5)
  - Dermatitis allergic [Unknown]
  - Varicose vein [Unknown]
  - Pruritus [Unknown]
  - Erythema [Unknown]
  - Drug ineffective [Unknown]
